FAERS Safety Report 19983938 (Version 2)
Quarter: 2021Q4

REPORT INFORMATION
  Report Type: Spontaneous
  Country: JP (occurrence: JP)
  Receive Date: 20211022
  Receipt Date: 20211111
  Transmission Date: 20220303
  Serious: Yes (Other)
  Sender: FDA-Public Use
  Company Number: JP-BAXTER-2021BAX032511

PATIENT
  Age: 63 Year
  Sex: Female

DRUGS (4)
  1. DOXORUBICIN HYDROCHLORIDE [Suspect]
     Active Substance: DOXORUBICIN HYDROCHLORIDE
     Indication: Ovarian cancer recurrent
     Dosage: 2.62MG/BODY(BSA1.537M2) (40 MG/M2)
     Route: 042
     Dates: start: 20170307
  2. DOXORUBICIN HYDROCHLORIDE [Suspect]
     Active Substance: DOXORUBICIN HYDROCHLORIDE
     Dosage: 2.62MG/BODY(BSA1.537M2) (40 MG/M2)
     Route: 042
     Dates: start: 20170307
  3. DOXORUBICIN HYDROCHLORIDE [Suspect]
     Active Substance: DOXORUBICIN HYDROCHLORIDE
     Dosage: 2.62MG/BODY(BSA1.537M2) (40 MG)
     Route: 042
     Dates: start: 20170404
  4. DEXAMETHASONE SODIUM PHOSPHATE [Concomitant]
     Active Substance: DEXAMETHASONE SODIUM PHOSPHATE
     Indication: Product used for unknown indication
     Route: 065

REACTIONS (3)
  - Ovarian cancer recurrent [Unknown]
  - Therapeutic product ineffective [Unknown]
  - Nail discolouration [Unknown]

NARRATIVE: CASE EVENT DATE: 20170410
